FAERS Safety Report 12419367 (Version 5)
Quarter: 2021Q3

REPORT INFORMATION
  Report Type: Report from Study
  Country: ES (occurrence: ES)
  Receive Date: 20160531
  Receipt Date: 20210927
  Transmission Date: 20211014
  Serious: Yes (Death, Hospitalization)
  Sender: FDA-Public Use
  Company Number: ES-ROCHE-1763586

PATIENT
  Age: 81 Year
  Sex: Male
  Weight: 79.5 kg

DRUGS (17)
  1. METAMIZOL [Concomitant]
     Active Substance: METAMIZOLE SODIUM
     Indication: PYREXIA
     Route: 042
     Dates: start: 20160308, end: 20160308
  2. VALSARTAN. [Concomitant]
     Active Substance: VALSARTAN
     Indication: HYPERTENSION
     Route: 048
     Dates: start: 20141120
  3. URBASON [Concomitant]
     Active Substance: METHYLPREDNISOLONE
     Route: 042
     Dates: start: 20160315, end: 20160315
  4. ALLOPURINOL. [Concomitant]
     Active Substance: ALLOPURINOL
     Indication: CHRONIC KIDNEY DISEASE
     Route: 048
     Dates: start: 20131016
  5. DIPHENHYDRAMINE. [Concomitant]
     Active Substance: DIPHENHYDRAMINE
     Route: 042
     Dates: start: 20160315, end: 20160315
  6. PARACETAMOL [Concomitant]
     Active Substance: ACETAMINOPHEN
     Indication: PROPHYLAXIS
     Route: 042
     Dates: start: 20160308, end: 20160308
  7. DIPHENHYDRAMINE. [Concomitant]
     Active Substance: DIPHENHYDRAMINE
     Route: 042
     Dates: start: 20160309, end: 20160309
  8. TETANUS TOXOID ADSORBED (VACCINE) [Concomitant]
     Active Substance: CLOSTRIDIUM TETANI TOXOID ANTIGEN (FORMALDEHYDE INACTIVATED)
     Dates: start: 20100107
  9. ATORVASTATINE [Concomitant]
     Active Substance: ATORVASTATIN
     Indication: HYPERCHOLESTEROLAEMIA
     Route: 048
     Dates: start: 20131217
  10. PARACETAMOL [Concomitant]
     Active Substance: ACETAMINOPHEN
     Indication: BACK PAIN
     Route: 042
     Dates: start: 20160309, end: 20160309
  11. DIPHENHYDRAMINE. [Concomitant]
     Active Substance: DIPHENHYDRAMINE
     Indication: PROPHYLAXIS
     Route: 042
     Dates: start: 20160308, end: 20160308
  12. URBASON [Concomitant]
     Active Substance: METHYLPREDNISOLONE
     Indication: PROPHYLAXIS
     Route: 042
     Dates: start: 20160308, end: 20160308
  13. OBINUTUZUMAB. [Suspect]
     Active Substance: OBINUTUZUMAB
     Indication: CHRONIC LYMPHOCYTIC LEUKAEMIA
     Dosage: MOST RECENT DOSE TAKEN ON 08/MAR/2016 AT 12 00 HOURS
     Route: 042
     Dates: start: 20160308
  14. PARACETAMOL [Concomitant]
     Active Substance: ACETAMINOPHEN
     Route: 042
     Dates: start: 20160315, end: 20160315
  15. URBASON [Concomitant]
     Active Substance: METHYLPREDNISOLONE
     Route: 042
     Dates: start: 20160309, end: 20160309
  16. ORFIDAL [Concomitant]
     Active Substance: LORAZEPAM
     Indication: INSOMNIA
     Route: 048
     Dates: start: 20120202
  17. INFLUENZA [Concomitant]
     Active Substance: INFLUENZA VIRUS VACCINE
     Dates: start: 20141218

REACTIONS (1)
  - Blood urea increased [Recovered/Resolved]

NARRATIVE: CASE EVENT DATE: 20160308
